FAERS Safety Report 4476811-3 (Version None)
Quarter: 2004Q4

REPORT INFORMATION
  Report Type: 
  Country: None (occurrence: None)
  Receive Date: 20041013
  Receipt Date: 20040928
  Transmission Date: 20050328
  Serious: Yes (Hospitalization, Other)
  Sender: FDA-Public Use
  Company Number: 2004S1002707

PATIENT
  Age: 76 Year
  Sex: Male
  Weight: 58.9676 kg

DRUGS (12)
  1. APOKYN [Suspect]
     Indication: PARKINSON'S DISEASE
     Dosage: 2 MG, ONE DOSE, SUBCUTANEOUS
     Route: 058
     Dates: start: 20040909, end: 20040909
  2. CARBIDOPA AND LEVODOPA [Concomitant]
  3. ROPINIROLE [Concomitant]
  4. ENTACAPONE [Concomitant]
  5. VITAMIN E [Concomitant]
  6. VITAMIN C [Concomitant]
  7. FOLIC ACID [Concomitant]
  8. MULTI-VITAMIN [Concomitant]
  9. STOOL SOFTENER [Concomitant]
  10. CLONAZEPAM [Concomitant]
  11. IBUPROFEN [Concomitant]
  12. CARBIDOPA/LEVODOPA CR [Concomitant]

REACTIONS (5)
  - ASTHENIA [None]
  - CHEST PAIN [None]
  - CHEST X-RAY ABNORMAL [None]
  - DRUG INEFFECTIVE [None]
  - DYSPNOEA [None]
